FAERS Safety Report 14072257 (Version 2)
Quarter: 2019Q1

REPORT INFORMATION
  Report Type: Report from Study
  Country: US (occurrence: US)
  Receive Date: 20171010
  Receipt Date: 20190208
  Transmission Date: 20190417
  Serious: No
  Sender: FDA-Public Use
  Company Number: US-SA-2017SA177707

PATIENT
  Age: 38 Year
  Sex: Female

DRUGS (3)
  1. DUPILUMAB [Suspect]
     Active Substance: DUPILUMAB
     Dosage: UNK
     Dates: start: 2018, end: 20181118
  2. DUPILUMAB [Suspect]
     Active Substance: DUPILUMAB
     Indication: DERMATITIS ATOPIC
     Dosage: 600 MG,1X
     Route: 058
     Dates: start: 20170817, end: 20170817
  3. DUPILUMAB [Suspect]
     Active Substance: DUPILUMAB
     Indication: ECZEMA
     Dosage: 300 MG,QOW
     Route: 058
     Dates: start: 2017, end: 20170928

REACTIONS (15)
  - Muscular weakness [Recovered/Resolved]
  - Eye disorder [Unknown]
  - Nasopharyngitis [Unknown]
  - Eczema [Unknown]
  - Urticaria [Unknown]
  - Paraesthesia [Unknown]
  - Myalgia [Recovered/Resolved]
  - Dermatitis [Not Recovered/Not Resolved]
  - Arthritis [Recovered/Resolved]
  - Headache [Unknown]
  - Arthralgia [Recovered/Resolved]
  - Pain [Recovered/Resolved]
  - Back pain [Recovered/Resolved]
  - Chapped lips [Unknown]
  - Drug ineffective [Unknown]

NARRATIVE: CASE EVENT DATE: 2017
